FAERS Safety Report 20959409 (Version 1)
Quarter: 2022Q2

REPORT INFORMATION
  Report Type: Spontaneous
  Country: None (occurrence: FR)
  Receive Date: 20220614
  Receipt Date: 20220614
  Transmission Date: 20220721
  Serious: Yes (Other)
  Sender: FDA-Public Use
  Company Number: FR-B.Braun Medical Inc.-2129874

PATIENT
  Age: 92 Year
  Sex: Female

DRUGS (8)
  1. HEPARIN SODIUM IN DEXTROSE [Suspect]
     Active Substance: HEPARIN SODIUM
  2. POTASSIUM CHLORIDE [Suspect]
     Active Substance: POTASSIUM CHLORIDE
  3. THIAMINE HYDROCHLORIDE [Suspect]
     Active Substance: THIAMINE HYDROCHLORIDE
  4. IRON\MINERALS\POTASSIUM IOD\SODIUM FLUORIDE\SODIUM MOLYBDATE\SODIUM SE [Suspect]
     Active Substance: IRON\MINERALS\POTASSIUM IOD\SODIUM FLUORIDE\SODIUM MOLYBDATE\SODIUM SELENITE\ZINC
  5. FUROSEMIDE [Suspect]
     Active Substance: FUROSEMIDE
  6. VIALEBEX [Suspect]
     Active Substance: ALBUMIN HUMAN
  7. CERNEVIT [Suspect]
     Active Substance: VITAMINS
  8. PYRIDOXINE [Suspect]
     Active Substance: PYRIDOXINE

REACTIONS (2)
  - Rhabdomyolysis [Recovering/Resolving]
  - Skin necrosis [Recovering/Resolving]
